FAERS Safety Report 17307694 (Version 1)
Quarter: 2020Q1

REPORT INFORMATION
  Report Type: Spontaneous
  Country: US (occurrence: US)
  Receive Date: 20200122
  Receipt Date: 20200122
  Transmission Date: 20200409
  Serious: Yes (Hospitalization)
  Sender: FDA-Public Use
  Company Number: None

PATIENT
  Sex: Female
  Weight: 57.15 kg

DRUGS (5)
  1. EPIRUBICIN [Concomitant]
     Active Substance: EPIRUBICIN
  2. HYDROCODONE-ACETAMINOPHEN 10-325MG [Concomitant]
     Active Substance: ACETAMINOPHEN\HYDROCODONE
  3. DEXAMETHASONE 1MG [Concomitant]
  4. ONDANSETRON 4MG [Concomitant]
     Active Substance: ONDANSETRON
  5. ZARXIO [Suspect]
     Active Substance: FILGRASTIM-SNDZ
     Indication: NEUTROPENIA
     Route: 058
     Dates: start: 20190430, end: 20200122

REACTIONS (1)
  - Hospitalisation [None]
